FAERS Safety Report 13450351 (Version 3)
Quarter: 2019Q3

REPORT INFORMATION
  Report Type: Spontaneous
  Country: FR (occurrence: FR)
  Receive Date: 20170417
  Receipt Date: 20190717
  Transmission Date: 20191004
  Serious: Yes (Hospitalization, Other)
  Sender: FDA-Public Use
  Company Number: FR-BEH-2017079559

PATIENT
  Age: 79 Year
  Sex: Female

DRUGS (16)
  1. DABRAFENIB [Suspect]
     Active Substance: DABRAFENIB
     Indication: MALIGNANT MELANOMA
     Dosage: UNK
     Route: 065
     Dates: start: 20170217
  2. TRAMETINIB [Suspect]
     Active Substance: TRAMETINIB
     Indication: MALIGNANT MELANOMA
     Dosage: UNK
     Route: 065
     Dates: start: 20170214
  3. PREVISCAN                          /00261401/ [Concomitant]
     Active Substance: PENTOXIFYLLINE
     Dosage: 1 TAB ? / DAY
     Route: 065
  4. EFFIZINC [Concomitant]
     Active Substance: ZINC GLUCONATE
     Dosage: 15 MG, 2 TABS/DAY
     Route: 065
  5. PRIVIGEN [Suspect]
     Active Substance: HUMAN IMMUNOGLOBULIN G
     Indication: GUILLAIN-BARRE SYNDROME
     Dosage: 25 GRAM, QD
     Route: 042
     Dates: start: 20170318, end: 20170322
  6. OXYNORMORO [Concomitant]
     Active Substance: OXYCODONE HYDROCHLORIDE
     Dosage: 10 MG EVERY 4 HRS, MAXIMUM 60 MG/DAY
     Route: 065
  7. LEVOCETIRIZINE [Concomitant]
     Active Substance: LEVOCETIRIZINE
     Dosage: 5 MG/DAY
     Route: 065
  8. INEXIUM                            /01479302/ [Concomitant]
     Active Substance: ESOMEPRAZOLE MAGNESIUM
     Dosage: 20 MG DAILY
     Route: 065
  9. FERROSTRANE [Concomitant]
     Active Substance: SODIUM FEREDETATE
     Dosage: 5 ML MORNING, NOON AND EVENING
     Route: 065
  10. DIFFU K [Concomitant]
     Active Substance: POTASSIUM CHLORIDE
     Dosage: 2 TABS/DAY
     Route: 065
  11. LYRICA [Concomitant]
     Active Substance: PREGABALIN
     Dosage: 2.5 MEASURE IN THE MORNING, ORAL SOLUTION
     Route: 048
  12. ATORVASTATIN [Concomitant]
     Active Substance: ATORVASTATIN
     Dosage: 80 MG/DAY
     Route: 065
  13. LEVETIRACETAM. [Concomitant]
     Active Substance: LEVETIRACETAM
     Dosage: 5 ML IN THE MORNING, ORAL SOLUTION
     Route: 048
  14. ARTELAC                            /00002701/ [Concomitant]
     Active Substance: ASPIRIN
     Dosage: EYE DROPS, 3 TIMES/DAY
     Route: 047
  15. DUROGESIC [Concomitant]
     Active Substance: FENTANYL
     Dosage: 75 ?G EVERY 72 HRS
     Route: 065
  16. LEVOTHYROX [Concomitant]
     Active Substance: LEVOTHYROXINE
     Dosage: 15 DROPS IN THE MORNING
     Route: 065

REACTIONS (2)
  - Neutropenia [Recovered/Resolved]
  - Urinary tract infection [Unknown]

NARRATIVE: CASE EVENT DATE: 201703
